FAERS Safety Report 21866481 (Version 4)
Quarter: 2023Q1

REPORT INFORMATION
  Report Type: Report from Study
  Country: BR (occurrence: BR)
  Receive Date: 20230116
  Receipt Date: 20230315
  Transmission Date: 20230418
  Serious: Yes (Other)
  Sender: FDA-Public Use
  Company Number: BR-002147023-NVSC2023BR008547

PATIENT
  Sex: Female

DRUGS (3)
  1. KISQALI [Suspect]
     Active Substance: RIBOCICLIB
     Indication: Product used for unknown indication
     Dosage: 600 MG, QD (PER DAY, MORNING, AFTERNOON, AND EVENING)
     Route: 048
  2. KISQALI [Suspect]
     Active Substance: RIBOCICLIB
     Dosage: 3 DOSAGE FORM, Q8H (TABLETS)
     Route: 065
  3. KISQALI [Suspect]
     Active Substance: RIBOCICLIB
     Dosage: 3 UNK, QD
     Route: 065

REACTIONS (9)
  - Metastasis [Unknown]
  - Breast mass [Recovering/Resolving]
  - Mass [Unknown]
  - Pelvic pain [Recovering/Resolving]
  - Head injury [Unknown]
  - Pain [Recovered/Resolved]
  - Insomnia [Unknown]
  - Product distribution issue [Unknown]
  - Inappropriate schedule of product administration [Recovered/Resolved]
